FAERS Safety Report 16909701 (Version 1)
Quarter: 2019Q4

REPORT INFORMATION
  Report Type: Spontaneous
  Country: US (occurrence: US)
  Receive Date: 20191011
  Receipt Date: 20191011
  Transmission Date: 20200122
  Serious: No
  Sender: FDA-Public Use
  Company Number: US-ELI_LILLY_AND_COMPANY-US201910006019

PATIENT
  Sex: Female
  Weight: 54.42 kg

DRUGS (6)
  1. CORGARD [Concomitant]
     Active Substance: NADOLOL
     Dosage: 40 MG, DAILY
     Dates: start: 2017
  2. BOTOX [Concomitant]
     Active Substance: ONABOTULINUMTOXINA
     Indication: MIGRAINE
     Dosage: UNK, MONTHLY (1/M)
     Route: 065
     Dates: start: 2015, end: 201907
  3. EMGALITY [Suspect]
     Active Substance: GALCANEZUMAB-GNLM
     Indication: PRODUCT USED FOR UNKNOWN INDICATION
     Dosage: 1 DOSAGE FORM, UNKNOWN
     Route: 065
     Dates: start: 201902, end: 201903
  4. RELPAX [Concomitant]
     Active Substance: ELETRIPTAN HYDROBROMIDE
     Indication: MIGRAINE
     Dosage: 40 MG, UNKNOWN
     Route: 065
     Dates: start: 2014, end: 201908
  5. RELPAX [Concomitant]
     Active Substance: ELETRIPTAN HYDROBROMIDE
     Dosage: 40 MG, UNKNOWN
     Route: 065
     Dates: start: 2014, end: 201908
  6. RELPAX [Concomitant]
     Active Substance: ELETRIPTAN HYDROBROMIDE
     Dosage: 40 MG, UNKNOWN
     Route: 065
     Dates: start: 2014, end: 201908

REACTIONS (1)
  - Myalgia [Unknown]
